FAERS Safety Report 18704117 (Version 2)
Quarter: 2021Q1

REPORT INFORMATION
  Report Type: Spontaneous
  Country: US (occurrence: US)
  Receive Date: 20210106
  Receipt Date: 20210201
  Transmission Date: 20210419
  Serious: No
  Sender: FDA-Public Use
  Company Number: US-ASTRAZENECA-2020SF65881

PATIENT
  Age: 22726 Day
  Sex: Female
  Weight: 70.8 kg

DRUGS (1)
  1. BYDUREON BCISE [Suspect]
     Active Substance: EXENATIDE
     Indication: TYPE 2 DIABETES MELLITUS
     Route: 058
     Dates: start: 202010

REACTIONS (4)
  - Product dose omission issue [Unknown]
  - Device delivery system issue [Unknown]
  - Blood glucose increased [Unknown]
  - Device leakage [Unknown]

NARRATIVE: CASE EVENT DATE: 20201208
